FAERS Safety Report 5995986-8 (Version None)
Quarter: 2008Q4

REPORT INFORMATION
  Report Type: 
  Country: None (occurrence: None)
  Receive Date: 20081212
  Receipt Date: 20081006
  Transmission Date: 20090506
  Serious: No
  Sender: FDA-Public Use
  Company Number: US-ABBOTT-08P-163-0480129-00

PATIENT
  Sex: Female
  Weight: 46.308 kg

DRUGS (2)
  1. HUMIRA [Suspect]
     Indication: CROHN'S DISEASE
     Route: 058
     Dates: start: 20080906
  2. HYDROCORTISONE [Concomitant]
     Indication: CONDITION AGGRAVATED
     Route: 054

REACTIONS (2)
  - ALOPECIA [None]
  - HYPOAESTHESIA [None]
